FAERS Safety Report 17584955 (Version 1)
Quarter: 2020Q1

REPORT INFORMATION
  Report Type: Spontaneous
  Country: US (occurrence: US)
  Receive Date: 20200326
  Receipt Date: 20200326
  Transmission Date: 20200409
  Serious: Yes (Other)
  Sender: FDA-Public Use
  Company Number: US-TEVA-2020-US-1210220

PATIENT
  Age: 57 Year
  Sex: Female

DRUGS (1)
  1. CLONAZEPAM. [Suspect]
     Active Substance: CLONAZEPAM
     Dosage: 1 MG
     Route: 065

REACTIONS (5)
  - Blood pressure increased [Unknown]
  - Chest pain [Unknown]
  - Anaphylactic reaction [Unknown]
  - Tachypnoea [Unknown]
  - Loss of consciousness [Unknown]
